FAERS Safety Report 5144335-6 (Version None)
Quarter: 2006Q4

REPORT INFORMATION
  Report Type: 
  Country: None (occurrence: None)
  Receive Date: 20061030
  Receipt Date: 20061016
  Transmission Date: 20070319
  Serious: Yes (Hospitalization, Other)
  Sender: FDA-Public Use
  Company Number: US200608005943

PATIENT
  Age: 67 Year
  Sex: Female

DRUGS (2)
  1. FORTEO [Suspect]
     Indication: OSTEOPOROSIS
     Dates: start: 20060331
  2. FORTEO [Suspect]

REACTIONS (8)
  - CONFUSIONAL STATE [None]
  - LUNG DISORDER [None]
  - LUNG INFECTION [None]
  - PHARMACEUTICAL PRODUCT COMPLAINT [None]
  - PLEURISY [None]
  - PLEURITIC PAIN [None]
  - PNEUMONIA [None]
  - STAPHYLOCOCCAL INFECTION [None]
